FAERS Safety Report 11314332 (Version 1)
Quarter: 2015Q3

REPORT INFORMATION
  Report Type: Spontaneous
  Country: FR (occurrence: FR)
  Receive Date: 20150727
  Receipt Date: 20150727
  Transmission Date: 20151125
  Serious: Yes (Death, Hospitalization, Other)
  Sender: FDA-Public Use
  Company Number: FR-JNJFOC-20150401696

PATIENT
  Age: 71 Year
  Sex: Male

DRUGS (10)
  1. PRETERAX [Concomitant]
     Active Substance: INDAPAMIDE\PERINDOPRIL
  2. PERMIXON [Concomitant]
     Active Substance: SAW PALMETTO
  3. TAHOR [Concomitant]
     Active Substance: ATORVASTATIN CALCIUM
  4. SPIRIVA [Concomitant]
     Active Substance: TIOTROPIUM BROMIDE MONOHYDRATE
  5. TRANXENE T-TAB [Concomitant]
     Active Substance: CLORAZEPATE DIPOTASSIUM
  6. DETENSIEL [Concomitant]
     Active Substance: BISOPROLOL FUMARATE
  7. IBRUTINIB [Suspect]
     Active Substance: IBRUTINIB
     Indication: CHRONIC LYMPHOCYTIC LEUKAEMIA
     Route: 048
     Dates: start: 20141218, end: 20150116
  8. PLAVIX [Concomitant]
     Active Substance: CLOPIDOGREL BISULFATE
  9. IBRUTINIB [Suspect]
     Active Substance: IBRUTINIB
     Indication: CHRONIC LYMPHOCYTIC LEUKAEMIA
     Route: 048
     Dates: start: 20141029, end: 20141217
  10. IBRUTINIB [Suspect]
     Active Substance: IBRUTINIB
     Indication: CHRONIC LYMPHOCYTIC LEUKAEMIA
     Route: 048
     Dates: start: 20150225

REACTIONS (9)
  - Diet refusal [Unknown]
  - Atrial fibrillation [Fatal]
  - Abnormal behaviour [Unknown]
  - Metabolic disorder [Fatal]
  - Cachexia [Fatal]
  - Electrolyte imbalance [Unknown]
  - Renal failure [Unknown]
  - Cardiac arrest [Fatal]
  - Agitation [Unknown]

NARRATIVE: CASE EVENT DATE: 20141217
